FAERS Safety Report 19490669 (Version 1)
Quarter: 2021Q3

REPORT INFORMATION
  Report Type: Spontaneous
  Country: FR (occurrence: FR)
  Receive Date: 20210705
  Receipt Date: 20210705
  Transmission Date: 20211014
  Serious: Yes (Hospitalization, Other)
  Sender: FDA-Public Use
  Company Number: FR-AMGEN-FRASP2021098801

PATIENT
  Age: 73 Year
  Sex: Male
  Weight: 58 kg

DRUGS (6)
  1. KYTRIL [Suspect]
     Active Substance: GRANISETRON HYDROCHLORIDE
     Indication: PROPHYLACTIC CHEMOTHERAPY
     Dosage: 3MG
     Route: 042
     Dates: start: 20210526, end: 20210526
  2. VECTIBIX [Suspect]
     Active Substance: PANITUMUMAB
     Indication: RECTAL CANCER
     Dosage: 350 MILLIGRAM
     Route: 042
     Dates: start: 20210526, end: 20210526
  3. LEVOFOLINATE CALCIUM [Suspect]
     Active Substance: LEVOLEUCOVORIN CALCIUM
     Indication: PROPHYLACTIC CHEMOTHERAPY
     Dosage: 330 MILLIGRAM
     Route: 042
     Dates: start: 20210526, end: 20210526
  4. SOLU?MEDROL [Suspect]
     Active Substance: METHYLPREDNISOLONE SODIUM SUCCINATE
     Indication: PROPHYLACTIC CHEMOTHERAPY
     Dosage: 120 MILLIGRAM
     Route: 042
     Dates: start: 20210526, end: 20210526
  5. POLARAMINE [Suspect]
     Active Substance: DEXCHLORPHENIRAMINE MALEATE
     Indication: PROPHYLACTIC CHEMOTHERAPY
     Dosage: 5 MILLIGRAM
     Route: 042
     Dates: start: 20210526, end: 20210526
  6. OXALIPLATINE ACCORD [Suspect]
     Active Substance: OXALIPLATIN
     Indication: RECTAL CANCER
     Dosage: 70 MILLIGRAM
     Route: 042
     Dates: start: 20210526, end: 20210526

REACTIONS (1)
  - Epilepsy [Recovered/Resolved]

NARRATIVE: CASE EVENT DATE: 20210526
